FAERS Safety Report 7680712-7 (Version None)
Quarter: 2011Q3

REPORT INFORMATION
  Report Type: 
  Country: None (occurrence: None)
  Receive Date: 20110812
  Receipt Date: 20110810
  Transmission Date: 20111222
  Serious: Yes (Death)
  Sender: FDA-Public Use
  Company Number: CN-PFIZER INC-2011175133

PATIENT
  Age: 7 Month

DRUGS (1)
  1. CEFOBID [Suspect]
     Indication: ENTERITIS
     Dosage: 1 G, UNK
     Route: 041

REACTIONS (1)
  - ANAPHYLACTIC SHOCK [None]
